FAERS Safety Report 4660076-3 (Version None)
Quarter: 2005Q2

REPORT INFORMATION
  Report Type: 
  Country: None (occurrence: None)
  Receive Date: 20050512
  Receipt Date: 20050309
  Transmission Date: 20051028
  Serious: No
  Sender: FDA-Public Use
  Company Number: US-GLAXOSMITHKLINE-A0549026A

PATIENT
  Sex: Female

DRUGS (1)
  1. RELAFEN [Suspect]
     Route: 048
     Dates: end: 20040501

REACTIONS (1)
  - PRURITUS [None]
